FAERS Safety Report 4907355-X (Version None)
Quarter: 2006Q1

REPORT INFORMATION
  Report Type: 
  Country: None (occurrence: None)
  Receive Date: 20060208
  Receipt Date: 20060208
  Transmission Date: 20060701
  Serious: Yes (Hospitalization)
  Sender: FDA-Public Use
  Company Number: None

PATIENT
  Age: 63 Year
  Sex: Male
  Weight: 79.3795 kg

DRUGS (3)
  1. CISPLATIN [Suspect]
     Dosage: 200 MG IV
     Route: 042
     Dates: start: 20051122, end: 20060119
  2. ETOPOSIDE [Suspect]
     Dosage: 200 MG IV
     Route: 042
     Dates: start: 20051122, end: 20060119
  3. CHEMOTHERAPY [Concomitant]

REACTIONS (4)
  - POST PROCEDURAL DIARRHOEA [None]
  - POST PROCEDURAL NAUSEA [None]
  - POST PROCEDURAL VOMITING [None]
  - TREATMENT NONCOMPLIANCE [None]
